FAERS Safety Report 23889767 (Version 1)
Quarter: 2024Q2

REPORT INFORMATION
  Report Type: Other
  Country: JP (occurrence: JP)
  Receive Date: 20240523
  Receipt Date: 20240523
  Transmission Date: 20240715
  Serious: Yes (Hospitalization)
  Sender: FDA-Public Use
  Company Number: JP-WT-2024-01760

PATIENT
  Age: 45 Year
  Sex: Female
  Weight: 46 kg

DRUGS (3)
  1. ESZOPICLONE [Suspect]
     Active Substance: ESZOPICLONE
     Indication: Insomnia
     Dosage: 84 MG
     Route: 048
  2. VALPROATE SODIUM [Concomitant]
     Active Substance: VALPROATE SODIUM
     Dosage: 13,900 MG
     Route: 048
  3. QUETIAPINE FUMARATE [Concomitant]
     Active Substance: QUETIAPINE FUMARATE
     Dosage: 725 MG
     Route: 048

REACTIONS (3)
  - Coma [Recovering/Resolving]
  - Pneumonia aspiration [Recovering/Resolving]
  - Overdose [Unknown]
